FAERS Safety Report 17424717 (Version 6)
Quarter: 2020Q1

REPORT INFORMATION
  Report Type: Spontaneous
  Country: ES (occurrence: ES)
  Receive Date: 20200217
  Receipt Date: 20200330
  Transmission Date: 20200409
  Serious: Yes (Hospitalization, Other)
  Sender: FDA-Public Use
  Company Number: ES-009507513-2002ESP005248

PATIENT
  Age: 65 Year
  Sex: Female

DRUGS (3)
  1. ZINPLAVA [Suspect]
     Active Substance: BEZLOTOXUMAB
     Indication: CLOSTRIDIUM DIFFICILE INFECTION
     Dosage: 1 DOSAGE FORM, UNKNOWN FREQUENCY
     Route: 048
     Dates: start: 20191127, end: 20191127
  2. VANCOMYCIN [Suspect]
     Active Substance: VANCOMYCIN
     Indication: CLOSTRIDIUM DIFFICILE INFECTION
     Dosage: FORMULATION: TAPERING, UNK UNK, UNKNOWN FREQ.
     Route: 065
     Dates: start: 2019, end: 2019
  3. FIDAXOMICIN [Suspect]
     Active Substance: FIDAXOMICIN
     Indication: CLOSTRIDIUM DIFFICILE INFECTION
     Dosage: FORMULATION: EXTENDED, UNK UNK, UNKNOWN FREQ.
     Route: 048
     Dates: start: 20191227

REACTIONS (5)
  - Clostridium difficile infection [Unknown]
  - Clostridium difficile infection [Recovered/Resolved]
  - Therapy cessation [Unknown]
  - Clostridium difficile infection [Unknown]
  - Pneumonia [Unknown]

NARRATIVE: CASE EVENT DATE: 2019
